FAERS Safety Report 8229997-9 (Version None)
Quarter: 2012Q1

REPORT INFORMATION
  Report Type: 
  Country: None (occurrence: None)
  Receive Date: 20120323
  Receipt Date: 20120320
  Transmission Date: 20120608
  Serious: No
  Sender: FDA-Public Use
  Company Number: US-BIOGENIDEC-2012BI009909

PATIENT
  Age: 59 Year
  Sex: Female

DRUGS (3)
  1. AMPYRA [Concomitant]
     Indication: GAIT DISTURBANCE
  2. TYSABRI [Suspect]
     Indication: MULTIPLE SCLEROSIS
     Route: 042
     Dates: start: 20110510
  3. AMPYRA [Concomitant]
     Indication: BALANCE DISORDER

REACTIONS (2)
  - VITAMIN D DECREASED [None]
  - VITAMIN B12 DECREASED [None]
